FAERS Safety Report 24771949 (Version 1)
Quarter: 2024Q4

REPORT INFORMATION
  Report Type: Spontaneous
  Country: BE (occurrence: BE)
  Receive Date: 20241224
  Receipt Date: 20241224
  Transmission Date: 20250114
  Serious: Yes (Other)
  Sender: GLAXOSMITHKLINE
  Company Number: None

PATIENT

DRUGS (5)
  1. LAMICTAL [Suspect]
     Active Substance: LAMOTRIGINE
     Indication: Depression
     Dosage: 2 DF, QD ((MORNING + EVENING) UNTIL 24/10, THEN 1X A DAY FOR 2 WEEKS)
     Route: 048
     Dates: end: 20241107
  2. LAMICTAL [Suspect]
     Active Substance: LAMOTRIGINE
     Indication: Mood swings
  3. VENLAFAXINE [Suspect]
     Active Substance: VENLAFAXINE HYDROCHLORIDE
     Indication: Depression
     Dosage: 300 MG, QD (IN THE MORNING AT BREAKFAST)
     Route: 065
     Dates: end: 20241011
  4. VENLAFAXINE [Suspect]
     Active Substance: VENLAFAXINE HYDROCHLORIDE
     Dosage: 225 MG, QD (IN THE MORNING AT BREAKFAST)
     Route: 065
     Dates: start: 20241011
  5. CHOLECALCIFEROL [Concomitant]
     Active Substance: CHOLECALCIFEROL
     Indication: Prophylaxis
     Dosage: 1 DF, WE (25000 IE)
     Route: 065

REACTIONS (7)
  - Suicidal ideation [Not Recovered/Not Resolved]
  - Dizziness [Recovered/Resolved]
  - Disturbance in attention [Not Recovered/Not Resolved]
  - Withdrawal syndrome [Not Recovered/Not Resolved]
  - Insomnia [Not Recovered/Not Resolved]
  - Nightmare [Not Recovered/Not Resolved]
  - Fatigue [Not Recovered/Not Resolved]

NARRATIVE: CASE EVENT DATE: 20241110
